FAERS Safety Report 6879693-5 (Version None)
Quarter: 2010Q3

REPORT INFORMATION
  Report Type: 
  Country: None (occurrence: None)
  Receive Date: 20100728
  Receipt Date: 20100714
  Transmission Date: 20110219
  Serious: Yes (Other)
  Sender: FDA-Public Use
  Company Number: US-ELI_LILLY_AND_COMPANY-US201007004341

PATIENT
  Sex: Female

DRUGS (12)
  1. FORTEO [Suspect]
     Indication: OSTEOPOROSIS
     Dosage: 20 UG, DAILY (1/D)
     Route: 065
     Dates: start: 20100224
  2. CARAFATE [Concomitant]
     Dosage: 10 MG, 3/D
     Route: 065
  3. MICARDIS HCT [Concomitant]
     Dosage: UNK, DAILY (1/D)
     Route: 065
  4. ABILIFY [Concomitant]
     Dosage: 20 MG, EACH EVENING
     Route: 065
  5. SEROQUEL [Concomitant]
     Dosage: 150 MG, EACH EVENING
     Route: 065
  6. GABAPENTIN [Concomitant]
     Dosage: 300 MG, 3/D
     Route: 065
  7. LEVOTHYROXINE SODIUM [Concomitant]
     Dosage: 100 MG, OTHER
     Route: 065
  8. CYMBALTA [Concomitant]
     Dosage: 60 MG, DAILY (1/D)
     Route: 065
  9. DEPAKOTE [Concomitant]
     Dosage: 500 MG, 2/D
     Route: 065
  10. METHERGINE [Concomitant]
     Dosage: 0.2 MG, 3/D
     Route: 065
  11. KETOROLAC [Concomitant]
     Dosage: 3 MG, AS NEEDED
     Route: 065
  12. DIHYDROERGOTAMINE [Concomitant]
     Dosage: 1 MG, UNKNOWN
     Route: 065

REACTIONS (5)
  - ARTHRALGIA [None]
  - BRAIN NEOPLASM [None]
  - MEMORY IMPAIRMENT [None]
  - MIGRAINE [None]
  - PAIN [None]
